FAERS Safety Report 17187480 (Version 1)
Quarter: 2019Q4

REPORT INFORMATION
  Report Type: Spontaneous
  Country: DE (occurrence: DE)
  Receive Date: 20191220
  Receipt Date: 20191220
  Transmission Date: 20200122
  Serious: Yes (Congenital Anomaly, Other)
  Sender: FDA-Public Use
  Company Number: DE-AUROBINDO-AUR-APL-2019-105762

PATIENT
  Sex: Male
  Weight: 3.6 kg

DRUGS (5)
  1. LAMOTRIGINE. [Suspect]
     Active Substance: LAMOTRIGINE
     Dosage: 700 MILLIGRAM,MATERNAL DOSE: 700 [MG/D (225-225-250) ]/ FOR TWO YEARS
     Route: 064
     Dates: start: 20091111
  2. VIMPAT [Suspect]
     Active Substance: LACOSAMIDE
     Dosage: 400 MILLIGRAM, ONCE A DAY,MATERNAL DOSE: 200 [MG/D (100-0-100) ]/ FOR ONE YEAR
     Route: 064
     Dates: start: 20100811
  3. FOLSAEURE [Concomitant]
     Active Substance: FOLIC ACID
     Indication: PRODUCT USED FOR UNKNOWN INDICATION
     Dosage: 5 UNK
     Route: 064
  4. VIMPAT [Suspect]
     Active Substance: LACOSAMIDE
     Indication: PRODUCT USED FOR UNKNOWN INDICATION
     Dosage: 400 MILLIGRAM, ONCE A DAY, MATERNAL DOSE: 200 [MG/D (100-0-100) ]/ FOR ONE YEAR
     Route: 064
     Dates: start: 200911
  5. LAMOTRIGINE. [Suspect]
     Active Substance: LAMOTRIGINE
     Indication: PRODUCT USED FOR UNKNOWN INDICATION
     Dosage: 700 MILLIGRAM, MATERNAL DOSE: 700 [MG/D (225-225-250) ]/ FOR TWO YEARS
     Route: 064
     Dates: start: 20100811

REACTIONS (6)
  - Hyperbilirubinaemia [Unknown]
  - Bradycardia neonatal [Recovered/Resolved]
  - Maternal exposure during pregnancy [Unknown]
  - Foetal exposure during pregnancy [Unknown]
  - Atrial septal defect [Unknown]
  - Coarctation of the aorta [Unknown]

NARRATIVE: CASE EVENT DATE: 200911
